FAERS Safety Report 8770348 (Version 1)
Quarter: 2012Q4

REPORT INFORMATION
  Report Type: 
  Country: EC (occurrence: EC)
  Receive Date: 20120906
  Receipt Date: 20120906
  Transmission Date: 20130627
  Serious: Yes (Death, Other)
  Sender: FDA-Public Use
  Company Number: EC-BAXTER-2012BAX015638

PATIENT
  Age: 60 Year
  Sex: Female
  Weight: 63.5 kg

DRUGS (8)
  1. DIANEAL PD-2 CON DEXTROSA AL 2.5% SOLUCION PARA DIALISIS PERITONEAL [Suspect]
     Indication: RENAL FAILURE CHRONIC
     Route: 033
  2. CALCIUM CARBONATE [Concomitant]
     Indication: DRUG USE FOR UNKNOWN INDICATION
     Route: 048
  3. B COMPLEX [Concomitant]
     Indication: DRUG USE FOR UNKNOWN INDICATION
     Route: 048
  4. FOLIC ACID [Concomitant]
     Indication: DRUG USE FOR UNKNOWN INDICATION
     Route: 048
  5. ASPIRIN [Concomitant]
     Indication: DRUG USE FOR UNKNOWN INDICATION
     Route: 048
  6. FUROSEMIDE [Concomitant]
     Indication: DRUG USE FOR UNKNOWN INDICATION
     Route: 048
  7. OMEPRAZOLE [Concomitant]
     Indication: DRUG USE FOR UNKNOWN INDICATION
     Route: 048
  8. ALZATEN [Concomitant]
     Indication: HYPOTENSION
     Route: 048

REACTIONS (3)
  - Hypotension [Fatal]
  - Abdominal pain [Fatal]
  - Malaise [Unknown]
